FAERS Safety Report 24810571 (Version 1)
Quarter: 2025Q1

REPORT INFORMATION
  Report Type: Spontaneous
  Country: US (occurrence: None)
  Receive Date: 20250104
  Receipt Date: 20250104
  Transmission Date: 20250409
  Serious: Yes (unspecified)
  Sender: FDA-CTU
  Company Number: None

PATIENT
  Age: 69 Year
  Sex: Female
  Weight: 58.95 kg

DRUGS (2)
  1. NAFTIFINE HYDROCHLORIDE [Suspect]
     Active Substance: NAFTIFINE HYDROCHLORIDE
     Indication: Tinea pedis
     Route: 061
     Dates: start: 20241222, end: 20250102
  2. DUPIXENT [Concomitant]
     Active Substance: DUPILUMAB

REACTIONS (2)
  - Rash erythematous [None]
  - Rash pruritic [None]

NARRATIVE: CASE EVENT DATE: 20250102
